FAERS Safety Report 5913991-4 (Version None)
Quarter: 2008Q4

REPORT INFORMATION
  Report Type: 
  Country: None (occurrence: None)
  Receive Date: 20081009
  Receipt Date: 20080930
  Transmission Date: 20090506
  Serious: Yes (Life-Threatening, Other)
  Sender: FDA-Public Use
  Company Number: US-WYE-H06187008

PATIENT
  Sex: Male
  Weight: 56.75 kg

DRUGS (4)
  1. ROBITUSSIN COUGH AND COLD CF [Suspect]
     Indication: COUGH
     Dosage: 2 TEASPOONS ONE TIME
     Route: 048
     Dates: start: 20080928, end: 20080928
  2. ROBITUSSIN COUGH AND COLD CF [Suspect]
     Indication: NASOPHARYNGITIS
  3. ACYCLOVIR [Suspect]
     Indication: DRUG USE FOR UNKNOWN INDICATION
     Dosage: UNKNOWN
     Route: 048
     Dates: start: 20080901
  4. DARVOCET-N 100 [Suspect]
     Indication: DRUG USE FOR UNKNOWN INDICATION
     Dosage: UNKNOWN
     Route: 048
     Dates: start: 20080901

REACTIONS (5)
  - BLOOD PRESSURE DECREASED [None]
  - FATIGUE [None]
  - HEADACHE [None]
  - MOVEMENT DISORDER [None]
  - VISUAL IMPAIRMENT [None]
